FAERS Safety Report 8443814-3 (Version None)
Quarter: 2012Q2

REPORT INFORMATION
  Report Type: 
  Country: None (occurrence: None)
  Receive Date: 20120323
  Receipt Date: 20111109
  Transmission Date: 20120825
  Serious: Yes (Hospitalization, Other)
  Sender: FDA-Public Use
  Company Number: 163-21880-11061644

PATIENT
  Age: 77 Year
  Sex: Female
  Weight: 52.8894 kg

DRUGS (27)
  1. POLYETHYLENE GLYCOL [Concomitant]
  2. POTASSIUM CHLORIDE [Concomitant]
  3. ATIVAN [Concomitant]
  4. REVLIMID [Suspect]
     Indication: MULTIPLE MYELOMA
     Dosage: 25 MG, DAILY X 21 DAYS, PO
     Route: 048
     Dates: start: 20110426, end: 20110101
  5. LEVAQUIN (LEVFLOXACIN) [Concomitant]
  6. NORVASC [Concomitant]
  7. ZOFRAN [Concomitant]
  8. ATARAX (HYROXYZINE HYDROCHLORIDE) [Concomitant]
  9. LACTULOSE [Concomitant]
  10. MORPHINE [Concomitant]
  11. SENOKOT [Concomitant]
  12. DILAUDID [Concomitant]
  13. PHENERGAN HCL [Concomitant]
  14. AMLODIPINE [Concomitant]
  15. PROTONIX [Concomitant]
  16. ACETAMINOPHEN [Concomitant]
  17. DULCOLAX [Concomitant]
  18. DEXAMETHASONE (DEXAMETHASON) [Concomitant]
  19. ASPIRIN [Concomitant]
  20. PEPCID [Concomitant]
  21. MYLICON (DIMETICONE, ACTIVATED) [Concomitant]
  22. NEXIUM [Concomitant]
  23. MILK OF MAGNESIA TAB [Concomitant]
  24. SIMVASTATIN [Concomitant]
  25. LOVENOX (HEPARIN-FRACTION, SODIUM SALF) [Concomitant]
  26. LISINOPRIL [Concomitant]
  27. AMBIEN [Concomitant]

REACTIONS (10)
  - PANCYTOPENIA [None]
  - WEIGHT DECREASED [None]
  - DEHYDRATION [None]
  - CONSTIPATION [None]
  - NAUSEA [None]
  - VOMITING [None]
  - FAILURE TO THRIVE [None]
  - ATRIAL FIBRILLATION [None]
  - ABDOMINAL PAIN [None]
  - CHEST PAIN [None]
